FAERS Safety Report 21923844 (Version 1)
Quarter: 2023Q1

REPORT INFORMATION
  Report Type: Spontaneous
  Country: GB (occurrence: GB)
  Receive Date: 20230130
  Receipt Date: 20230130
  Transmission Date: 20230417
  Serious: Yes (Disabling, Other)
  Sender: FDA-Public Use
  Company Number: GB-MHRA-MED-202301131859011560-JLBTV

PATIENT
  Age: 74 Year
  Sex: Male
  Weight: 69 kg

DRUGS (3)
  1. ATORVASTATIN [Suspect]
     Active Substance: ATORVASTATIN
     Indication: Ischaemic heart disease prophylaxis
     Dosage: 80 MILLIGRAM DAILY;
     Dates: start: 20210823, end: 202206
  2. TICAGRELOR [Concomitant]
     Active Substance: TICAGRELOR
     Indication: Product used for unknown indication
     Dates: start: 20210823, end: 202206
  3. PREDNISOLONE [Concomitant]
     Active Substance: PREDNISOLONE
     Indication: Polymyalgia rheumatica

REACTIONS (5)
  - Muscle rupture [Recovering/Resolving]
  - Muscle haemorrhage [Recovering/Resolving]
  - Hypertension [Recovering/Resolving]
  - Blood creatine phosphokinase increased [Unknown]
  - Myalgia [Unknown]

NARRATIVE: CASE EVENT DATE: 20220601
